FAERS Safety Report 8343934-8 (Version None)
Quarter: 2012Q2

REPORT INFORMATION
  Report Type: 
  Country: None (occurrence: None)
  Receive Date: 20120508
  Receipt Date: 20101108
  Transmission Date: 20120825
  Serious: Yes (Other)
  Sender: FDA-Public Use
  Company Number: US-TEVA-2010005841

PATIENT
  Sex: Female

DRUGS (1)
  1. TREANDA [Suspect]
     Route: 041

REACTIONS (2)
  - HYPOTENSION [None]
  - WHEEZING [None]
